FAERS Safety Report 25135245 (Version 1)
Quarter: 2025Q1

REPORT INFORMATION
  Report Type: Spontaneous
  Country: US (occurrence: US)
  Receive Date: 20250328
  Receipt Date: 20250328
  Transmission Date: 20250409
  Serious: No
  Sender: ABBVIE
  Company Number: US-ABBVIE-6193149

PATIENT
  Age: 40 Year
  Sex: Female

DRUGS (1)
  1. LILETTA [Suspect]
     Active Substance: LEVONORGESTREL
     Indication: Contraception
     Route: 015

REACTIONS (2)
  - Device deployment issue [Not Recovered/Not Resolved]
  - Medical device site haemorrhage [Unknown]

NARRATIVE: CASE EVENT DATE: 20250320
